FAERS Safety Report 6516342-X (Version None)
Quarter: 2009Q4

REPORT INFORMATION
  Report Type: 
  Country: None (occurrence: None)
  Receive Date: 20091223
  Receipt Date: 20091221
  Transmission Date: 20100525
  Serious: Yes (Other)
  Sender: FDA-Public Use
  Company Number: A0810584A

PATIENT
  Age: 51 Year
  Sex: Female

DRUGS (6)
  1. BUPROPION HYDROCHLORIDE [Suspect]
     Indication: DEPRESSION
     Dosage: 150MG TWICE PER DAY
     Route: 048
     Dates: start: 20090201, end: 20090801
  2. TRAZODONE HCL [Concomitant]
  3. PRILOSEC [Concomitant]
  4. NEXIUM [Concomitant]
  5. ERGOCALCIFEROL [Concomitant]
  6. SYNTHROID [Concomitant]

REACTIONS (4)
  - COUGH [None]
  - HYPOTHYROIDISM [None]
  - OFF LABEL USE [None]
  - THERAPEUTIC RESPONSE UNEXPECTED [None]
